FAERS Safety Report 6816746-1 (Version None)
Quarter: 2010Q3

REPORT INFORMATION
  Report Type: 
  Country: None (occurrence: None)
  Receive Date: 20100706
  Receipt Date: 20100622
  Transmission Date: 20110219
  Serious: Yes (Other)
  Sender: FDA-Public Use
  Company Number: PHHY2010DE19367

PATIENT
  Sex: Female

DRUGS (2)
  1. LEPONEX [Suspect]
     Dosage: 250 MG/DAY
     Route: 048
     Dates: start: 20100101
  2. LEPONEX [Suspect]
     Dosage: 250 MG/DAILY

REACTIONS (1)
  - FISTULA [None]
